FAERS Safety Report 8003798-9 (Version None)
Quarter: 2011Q4

REPORT INFORMATION
  Report Type: 
  Country: None (occurrence: None)
  Receive Date: 20111222
  Receipt Date: 20111213
  Transmission Date: 20120403
  Serious: Yes (Other)
  Sender: FDA-Public Use
  Company Number: GR-ABBOTT-11P-066-0882985-02

PATIENT
  Sex: Male

DRUGS (1)
  1. HUMIRA [Suspect]
     Indication: PSORIASIS
     Route: 058
     Dates: start: 20091110, end: 20111101

REACTIONS (4)
  - TONSILLITIS [None]
  - PYREXIA [None]
  - MALAISE [None]
  - OROPHARYNGEAL PAIN [None]
